FAERS Safety Report 7297436-0 (Version None)
Quarter: 2011Q1

REPORT INFORMATION
  Report Type: 
  Country: None (occurrence: None)
  Receive Date: 20110216
  Receipt Date: 20110210
  Transmission Date: 20110831
  Serious: Yes (Hospitalization, Other)
  Sender: FDA-Public Use
  Company Number: JP-PFIZER INC-2011028466

PATIENT
  Age: 78 Year
  Sex: Male

DRUGS (1)
  1. GABAPEN [Suspect]
     Indication: PAIN
     Dosage: UNK
     Route: 048
     Dates: start: 20110204, end: 20110207

REACTIONS (1)
  - INTERSTITIAL LUNG DISEASE [None]
